FAERS Safety Report 13199120 (Version 2)
Quarter: 2017Q1

REPORT INFORMATION
  Report Type: Report from Study
  Country: HT (occurrence: HT)
  Receive Date: 20170208
  Receipt Date: 20170227
  Transmission Date: 20170428
  Serious: Yes (Death, Hospitalization)
  Sender: FDA-Public Use
  Company Number: PHHY2017HT020215

PATIENT
  Sex: Female
  Weight: 56.4 kg

DRUGS (2)
  1. GLIVEC [Suspect]
     Active Substance: IMATINIB MESYLATE
     Indication: GASTROINTESTINAL STROMAL TUMOUR
     Dosage: 400 MG, UNK
     Route: 048
     Dates: start: 20130805, end: 201609
  2. FERROUS SULFATE. [Concomitant]
     Active Substance: FERROUS SULFATE
     Indication: PRODUCT USED FOR UNKNOWN INDICATION
     Dosage: 200 MG PLUS 250 MICROGRAM
     Route: 065
     Dates: start: 201501, end: 201609

REACTIONS (7)
  - Gastrointestinal stromal tumour [Fatal]
  - Abdominal distension [Unknown]
  - Performance status decreased [Unknown]
  - Discomfort [Unknown]
  - Anaemia [Unknown]
  - Malignant neoplasm progression [Fatal]
  - Abdominal pain [Unknown]
